FAERS Safety Report 9268417 (Version 2)
Quarter: 2013Q2

REPORT INFORMATION
  Report Type: Report from Study
  Country: US (occurrence: US)
  Receive Date: 20130502
  Receipt Date: 20130612
  Transmission Date: 20140414
  Serious: Yes (Death)
  Sender: FDA-Public Use
  Company Number: US-MPIJNJ-2013-03476

PATIENT
  Sex: 0

DRUGS (4)
  1. VELCADE [Suspect]
     Indication: PLASMA CELL MYELOMA
     Dosage: 1.6 MG/M2, CYCLIC
     Route: 042
  2. DOXIL [Suspect]
     Indication: PLASMA CELL MYELOMA
     Dosage: 30 MG/M2, CYCLIC
     Route: 042
  3. DEXAMETHASONE [Suspect]
     Indication: PLASMA CELL MYELOMA
     Dosage: 40 MG, CYCLIC
     Route: 048
  4. CYCLOPHOSPHAMIDE [Suspect]
     Indication: PLASMA CELL MYELOMA
     Dosage: 300 MG/M2, CYCLIC
     Route: 042

REACTIONS (1)
  - Death [Fatal]
